FAERS Safety Report 5123803-7 (Version None)
Quarter: 2006Q3

REPORT INFORMATION
  Report Type: 
  Country: None (occurrence: None)
  Receive Date: 20060802
  Receipt Date: 20050713
  Transmission Date: 20061208
  Serious: Yes (Other)
  Sender: FDA-Public Use
  Company Number: 2005-07-0814

PATIENT
  Age: 70 Year
  Sex: Female
  Weight: 63.5036 kg

DRUGS (14)
  1. RIBAVIRIN [Suspect]
     Indication: HEPATITIS C
     Dosage: 1000 MG QD ORAL
     Route: 048
     Dates: start: 20050205, end: 20050322
  2. REMICADE [Suspect]
     Indication: CROHN'S DISEASE
     Dosage: 2 VIALS
     Dates: start: 20030401
  3. ASACOL [Concomitant]
  4. INSULIN [Concomitant]
  5. DOXEPIN HCL [Concomitant]
  6. EYE DROPS [Concomitant]
  7. MERCAPTOPURINE [Concomitant]
  8. PEGASYS [Concomitant]
  9. FOLIC ACID [Concomitant]
  10. CYANOCOBALAMIN [Concomitant]
  11. FERROUS SULFATE TAB [Concomitant]
  12. HYDROCORTISONE [Concomitant]
  13. ZANTAC [Concomitant]
  14. HYDROCODONE [Concomitant]

REACTIONS (1)
  - ANAEMIA [None]
